FAERS Safety Report 4866487-5 (Version None)
Quarter: 2005Q4

REPORT INFORMATION
  Report Type: 
  Country: None (occurrence: None)
  Receive Date: 20051227
  Receipt Date: 20051108
  Transmission Date: 20060501
  Serious: Yes (Death, Hospitalization, Other)
  Sender: FDA-Public Use
  Company Number: US-MERCK-0511USA01268

PATIENT
  Age: 54 Year
  Sex: Female
  Weight: 67 kg

DRUGS (6)
  1. VIOXX [Suspect]
     Indication: PAIN
     Route: 048
     Dates: start: 20000101, end: 20031108
  2. ESTRADIOL [Concomitant]
     Route: 048
  3. PAXIL [Concomitant]
     Route: 065
  4. AMBIEN [Concomitant]
     Route: 048
  5. HYZAAR [Concomitant]
     Route: 048
  6. FIORINAL W/CODEINE [Concomitant]
     Route: 065

REACTIONS (16)
  - ACUTE MYOCARDIAL INFARCTION [None]
  - AFFECT LABILITY [None]
  - ANGINA UNSTABLE [None]
  - BACK PAIN [None]
  - CHEST PAIN [None]
  - CONTUSION [None]
  - CORONARY ARTERY DISEASE [None]
  - HAEMATOCRIT DECREASED [None]
  - HAEMOGLOBIN DECREASED [None]
  - HYPERTENSION [None]
  - MYOCARDIAL INFARCTION [None]
  - OPTIC NEURITIS [None]
  - PETECHIAE [None]
  - SUDDEN CARDIAC DEATH [None]
  - TOOTH ABSCESS [None]
  - VASCULAR GRAFT OCCLUSION [None]
